FAERS Safety Report 8811850 (Version 1)
Quarter: 2012Q4

REPORT INFORMATION
  Report Type: 
  Country: CN (occurrence: CN)
  Receive Date: 20120927
  Receipt Date: 20120927
  Transmission Date: 20130627
  Serious: Yes (Hospitalization)
  Sender: FDA-Public Use
  Company Number: CN-VIIV HEALTHCARE LIMITED-B0832970A

PATIENT
  Age: 45 Year
  Sex: Male
  Weight: 49 kg

DRUGS (1)
  1. LAMIVUDINE-HIV [Suspect]
     Indication: ACQUIRED IMMUNODEFICIENCY SYNDROME
     Dosage: .1G per day
     Route: 048
     Dates: start: 20100927, end: 20101120

REACTIONS (5)
  - Acquired immunodeficiency syndrome [Recovering/Resolving]
  - Rash [Recovered/Resolved]
  - Dyspnoea [Recovering/Resolving]
  - Asthenia [Recovering/Resolving]
  - Polyuria [Recovering/Resolving]
